FAERS Safety Report 4909307-2 (Version None)
Quarter: 2006Q1

REPORT INFORMATION
  Report Type: 
  Country: None (occurrence: None)
  Receive Date: 20060213
  Receipt Date: 20060110
  Transmission Date: 20060701
  Serious: Yes (Hospitalization)
  Sender: FDA-Public Use
  Company Number: US-JNJFOC-20060103990

PATIENT
  Sex: Female
  Weight: 109.77 kg

DRUGS (1)
  1. ORTHO EVRA [Suspect]
     Indication: CONTRACEPTION
     Dates: start: 20031231

REACTIONS (2)
  - PERIPARTUM CARDIOMYOPATHY [None]
  - PULMONARY EMBOLISM [None]
